FAERS Safety Report 13773119 (Version 2)
Quarter: 2017Q3

REPORT INFORMATION
  Report Type: Report from Study
  Country: US (occurrence: US)
  Receive Date: 20170720
  Receipt Date: 20170724
  Transmission Date: 20171127
  Serious: Yes (Death, Other)
  Sender: FDA-Public Use
  Company Number: US-GILEAD-2017-0284113

PATIENT
  Age: 77 Year
  Sex: Female

DRUGS (10)
  1. VITAMIN D3 [Concomitant]
     Active Substance: CHOLECALCIFEROL
  2. AMBRISENTAN [Suspect]
     Active Substance: AMBRISENTAN
     Indication: SCLERODERMA
     Dosage: 5 MG, QD
     Route: 065
     Dates: start: 2012, end: 20170712
  3. GABAPENTIN. [Concomitant]
     Active Substance: GABAPENTIN
  4. MULTIPLE VITAMINS [Concomitant]
     Active Substance: VITAMINS
  5. OMEPRAZOLE. [Concomitant]
     Active Substance: OMEPRAZOLE
  6. PREDNISONE. [Concomitant]
     Active Substance: PREDNISONE
  7. XELJANZ [Concomitant]
     Active Substance: TOFACITINIB CITRATE
  8. DILTIAZEM. [Concomitant]
     Active Substance: DILTIAZEM
  9. FOLIC ACID. [Concomitant]
     Active Substance: FOLIC ACID
  10. LYRICA [Concomitant]
     Active Substance: PREGABALIN

REACTIONS (3)
  - Pneumonia [Fatal]
  - Respiratory arrest [Fatal]
  - Off label use [Unknown]

NARRATIVE: CASE EVENT DATE: 2012
